FAERS Safety Report 8991049 (Version 1)
Quarter: 2012Q4

REPORT INFORMATION
  Report Type: 
  Country: HN (occurrence: HN)
  Receive Date: 20121231
  Receipt Date: 20121231
  Transmission Date: 20130627
  Serious: Yes (Other)
  Sender: FDA-Public Use
  Company Number: HN-BAYER-2012-135811

PATIENT
  Sex: Female

DRUGS (1)
  1. MIRENA [Suspect]
     Dosage: 20 ?g, CONT
     Route: 015

REACTIONS (2)
  - Coital bleeding [Unknown]
  - Dyspareunia [None]
